FAERS Safety Report 16368893 (Version 1)
Quarter: 2019Q2

REPORT INFORMATION
  Report Type: Spontaneous
  Country: US (occurrence: US)
  Receive Date: 20190529
  Receipt Date: 20190529
  Transmission Date: 20190711
  Serious: Yes (Disabling, Other)
  Sender: FDA-Public Use
  Company Number: US-ELI_LILLY_AND_COMPANY-US201905010028

PATIENT
  Sex: Female

DRUGS (4)
  1. CLOBETASOL PROPIONATE. [Concomitant]
     Active Substance: CLOBETASOL PROPIONATE
     Indication: PSORIASIS
     Dosage: UNK, BID
     Route: 065
  2. TALTZ [Suspect]
     Active Substance: IXEKIZUMAB
     Indication: PSORIASIS
  3. PROLIA [Concomitant]
     Active Substance: DENOSUMAB
     Indication: PRODUCT USED FOR UNKNOWN INDICATION
     Dosage: UNK, UNKNOWN
     Route: 065
  4. TALTZ [Suspect]
     Active Substance: IXEKIZUMAB
     Indication: ARTHRITIS
     Dosage: UNK, UNKNOWN
     Route: 065
     Dates: start: 201805

REACTIONS (8)
  - Impaired self-care [Unknown]
  - Amnesia [Recovering/Resolving]
  - Aphasia [Recovering/Resolving]
  - Abulia [Recovering/Resolving]
  - Alopecia [Unknown]
  - Cerebrovascular accident [Recovering/Resolving]
  - Gait inability [Unknown]
  - Transient ischaemic attack [Recovering/Resolving]

NARRATIVE: CASE EVENT DATE: 201903
